FAERS Safety Report 25942729 (Version 1)
Quarter: 2025Q4

REPORT INFORMATION
  Report Type: Spontaneous
  Country: VN (occurrence: VN)
  Receive Date: 20251021
  Receipt Date: 20251021
  Transmission Date: 20260118
  Serious: Yes (Other)
  Sender: NOVARTIS
  Company Number: VN-002147023-NVSC2025VN153479

PATIENT
  Age: 50 Year
  Sex: Female

DRUGS (4)
  1. RIBOCICLIB [Suspect]
     Active Substance: RIBOCICLIB
     Indication: Breast cancer
     Dosage: 600 MG, QD
     Route: 048
     Dates: start: 20240130
  2. LETROZOLE [Suspect]
     Active Substance: LETROZOLE
     Indication: Breast cancer
     Dosage: 2.5 MG, QD
     Route: 065
     Dates: start: 20240130
  3. ZOLEDRONIC ACID [Suspect]
     Active Substance: ZOLEDRONIC ACID
     Indication: Breast cancer
     Dosage: 4 MG, Q4W
     Route: 065
     Dates: start: 20240130
  4. GOSERELIN [Concomitant]
     Active Substance: GOSERELIN
     Indication: Product used for unknown indication
     Dosage: 3.6 MG, Q4W
     Route: 065
     Dates: start: 20240130

REACTIONS (3)
  - Metastases to lung [Unknown]
  - Pulmonary fibrosis [Unknown]
  - Therapy partial responder [Unknown]
